FAERS Safety Report 15440840 (Version 2)
Quarter: 2018Q4

REPORT INFORMATION
  Report Type: Spontaneous
  Country: AE (occurrence: AE)
  Receive Date: 20180928
  Receipt Date: 20181011
  Transmission Date: 20190204
  Serious: Yes (Other)
  Sender: FDA-Public Use
  Company Number: AE-HIKMA PHARMACEUTICALS USA INC.-AE-H14001-18-07570

PATIENT
  Age: 32 Year
  Sex: Female

DRUGS (3)
  1. CIPROLON [Suspect]
     Active Substance: CIPROFLOXACIN
     Indication: TYPHOID FEVER
     Route: 042
     Dates: start: 20180922, end: 20180923
  2. METRONIDAZOLE. [Concomitant]
     Active Substance: METRONIDAZOLE
     Indication: PRODUCT USED FOR UNKNOWN INDICATION
     Route: 065
  3. LACTIC ACID BACILLUS [Concomitant]
     Indication: PRODUCT USED FOR UNKNOWN INDICATION
     Route: 065

REACTIONS (2)
  - Injection site erythema [Recovering/Resolving]
  - Rash [Recovering/Resolving]

NARRATIVE: CASE EVENT DATE: 20180922
